FAERS Safety Report 12263567 (Version 1)
Quarter: 2016Q2

REPORT INFORMATION
  Report Type: Spontaneous
  Country: US (occurrence: US)
  Receive Date: 20160413
  Receipt Date: 20160413
  Transmission Date: 20160815
  Serious: No
  Sender: FDA-Public Use
  Company Number: US-JNJFOC-20160329500

PATIENT
  Age: 77 Year
  Sex: Male
  Weight: 68.04 kg

DRUGS (1)
  1. TYLENOL EXTRA STRENGTH [Suspect]
     Active Substance: ACETAMINOPHEN
     Indication: PRODUCT USED FOR UNKNOWN INDICATION
     Route: 065
     Dates: start: 20160325, end: 20160325

REACTIONS (2)
  - Product package associated injury [Recovering/Resolving]
  - Product closure removal difficult [Unknown]

NARRATIVE: CASE EVENT DATE: 20160325
